FAERS Safety Report 7964324-3 (Version None)
Quarter: 2011Q4

REPORT INFORMATION
  Report Type: 
  Country: None (occurrence: None)
  Receive Date: 20111208
  Receipt Date: 20111128
  Transmission Date: 20120403
  Serious: Yes (Other)
  Sender: FDA-Public Use
  Company Number: US-BAYER-2011-035163

PATIENT
  Age: 34 Year
  Sex: Female
  Weight: 102.49 kg

DRUGS (6)
  1. COREG [Concomitant]
     Indication: CARDIAC FAILURE CONGESTIVE
     Dosage: 12.5 MG, BID
     Dates: start: 20081201, end: 20090501
  2. MAVIK [Concomitant]
     Indication: CARDIAC FAILURE CONGESTIVE
     Dosage: DAILY DOSE 1 MG
     Dates: start: 20081201, end: 20090501
  3. POTASSIUM CHLORIDE [Concomitant]
     Indication: CARDIAC FAILURE CONGESTIVE
     Dosage: DAILY DOSE 40 MG
     Dates: start: 20081201, end: 20090501
  4. LASIX [Concomitant]
     Indication: CARDIAC FAILURE CONGESTIVE
     Dosage: DAILY DOSE 40 MG
     Dates: start: 20081201, end: 20090501
  5. YAZ [Suspect]
     Indication: CONTRACEPTION
     Dosage: UNK
     Dates: start: 20090406, end: 20090601
  6. YAZ [Suspect]
     Indication: ACNE

REACTIONS (4)
  - PANCREATITIS [None]
  - GALLBLADDER DISORDER [None]
  - CHOLECYSTITIS CHRONIC [None]
  - INJURY [None]
